FAERS Safety Report 6929208-8 (Version None)
Quarter: 2010Q3

REPORT INFORMATION
  Report Type: 
  Country: None (occurrence: None)
  Receive Date: 20100813
  Receipt Date: 20100730
  Transmission Date: 20110219
  Serious: Yes (Hospitalization, Other)
  Sender: FDA-Public Use
  Company Number: 231393J10USA

PATIENT
  Age: 55 Year
  Sex: Male

DRUGS (8)
  1. REBIF [Suspect]
     Indication: MULTIPLE SCLEROSIS
     Dosage: 44 MCG, 3 IN 1 WK, SUBCUTANEOUS
     Route: 058
     Dates: start: 20090401, end: 20100208
  2. REBIF [Suspect]
     Indication: MULTIPLE SCLEROSIS
     Dosage: 44 MCG, 3 IN 1 WK, SUBCUTANEOUS
     Route: 058
     Dates: start: 20100101, end: 20100723
  3. CITALOPRAM HYDROBROMIDE [Concomitant]
  4. GLYBURIDE [Concomitant]
  5. DEPAKOTE [Concomitant]
  6. DILANTIN [Concomitant]
  7. REQUIP [Concomitant]
  8. DAVOCET (APOREX) [Concomitant]

REACTIONS (13)
  - ABNORMAL BEHAVIOUR [None]
  - ANXIETY [None]
  - ASTHENIA [None]
  - DEPRESSION [None]
  - DYSPNOEA [None]
  - FEELING ABNORMAL [None]
  - INSOMNIA [None]
  - POOR PERSONAL HYGIENE [None]
  - RESTLESS LEGS SYNDROME [None]
  - SELF-INJURIOUS IDEATION [None]
  - SUICIDAL IDEATION [None]
  - VIOLENCE-RELATED SYMPTOM [None]
  - WEIGHT DECREASED [None]
